FAERS Safety Report 7064286-X (Version None)
Quarter: 2010Q4

REPORT INFORMATION
  Report Type: 
  Country: None (occurrence: None)
  Receive Date: 20101027
  Receipt Date: 20101018
  Transmission Date: 20110411
  Serious: Yes (Death, Life-Threatening, Hospitalization)
  Sender: FDA-Public Use
  Company Number: JP-ASTRAZENECA-2010SE11010

PATIENT
  Age: 82 Year
  Sex: Male
  Weight: 53 kg

DRUGS (8)
  1. CANDESARTAN CILEXETIL AND HYDROCHLOROTHIAZIDE [Suspect]
     Indication: HYPERTENSION
     Route: 048
     Dates: start: 20090910, end: 20100127
  2. STOGAR [Concomitant]
     Indication: GASTRIC ULCER
     Route: 048
     Dates: end: 20100127
  3. TAMSULOSIN HCL [Concomitant]
     Indication: BENIGN PROSTATIC HYPERPLASIA
     Route: 048
     Dates: end: 20100127
  4. DEPROMEL [Concomitant]
     Indication: DEPRESSION
     Route: 048
     Dates: end: 20100127
  5. ALOSENN [Concomitant]
     Indication: CONSTIPATION
     Route: 048
     Dates: end: 20100127
  6. GLYBURIDE [Concomitant]
     Indication: DIABETES MELLITUS
     Route: 048
     Dates: end: 20100127
  7. HALCION [Concomitant]
     Indication: INSOMNIA
     Route: 048
     Dates: end: 20100127
  8. ALVESCO [Concomitant]
     Indication: ASTHMA
     Route: 055
     Dates: start: 20090826, end: 20100127

REACTIONS (3)
  - AORTIC DISSECTION [None]
  - CEREBRAL HAEMORRHAGE [None]
  - RENAL DISORDER [None]
